FAERS Safety Report 5737608-7 (Version None)
Quarter: 2008Q2

REPORT INFORMATION
  Report Type: 
  Country: None (occurrence: None)
  Receive Date: 20080512
  Receipt Date: 20080512
  Transmission Date: 20081010
  Serious: Yes (Hospitalization)
  Sender: FDA-Public Use
  Company Number: None

PATIENT
  Age: 56 Year
  Sex: Male
  Weight: 46.2669 kg

DRUGS (5)
  1. ALIMTA [Suspect]
     Dates: end: 20080409
  2. ERBITUX [Suspect]
     Dates: end: 20080409
  3. RADIATION THERAPY [Concomitant]
     Dates: end: 20080422
  4. OXYCODONE HCL [Concomitant]
  5. FENTANYL TRANSDERMAL SYSTEM [Concomitant]

REACTIONS (2)
  - ORAL PAIN [None]
  - WEIGHT DECREASED [None]
